FAERS Safety Report 5255289-6 (Version None)
Quarter: 2007Q1

REPORT INFORMATION
  Report Type: 
  Country: None (occurrence: None)
  Receive Date: 20070305
  Receipt Date: 20070220
  Transmission Date: 20070707
  Serious: Yes (Other)
  Sender: FDA-Public Use
  Company Number: JP-ROCHE-482984

PATIENT
  Age: 67 Year
  Sex: Female
  Weight: 35 kg

DRUGS (7)
  1. RIVOTRIL [Suspect]
     Indication: AUTONOMIC NERVOUS SYSTEM IMBALANCE
     Route: 048
     Dates: start: 20060106
  2. CABASER [Suspect]
     Indication: PARKINSON'S DISEASE
     Route: 048
     Dates: start: 20060106
  3. ALMARL [Suspect]
     Indication: TREMOR
     Route: 048
     Dates: start: 20040106
  4. MENESIT [Concomitant]
     Route: 048
     Dates: start: 20040106
  5. DEPAS [Concomitant]
     Route: 048
     Dates: start: 20060106
  6. POLLAKISU [Concomitant]
     Route: 048
     Dates: start: 20060106
  7. FOSAMAX [Concomitant]
     Route: 048
     Dates: start: 20060106

REACTIONS (1)
  - HYPOGLYCAEMIA [None]
